FAERS Safety Report 4474649-4 (Version None)
Quarter: 2004Q4

REPORT INFORMATION
  Report Type: 
  Country: None (occurrence: None)
  Receive Date: 20041012
  Receipt Date: 20040929
  Transmission Date: 20050328
  Serious: Yes (Disabling)
  Sender: FDA-Public Use
  Company Number: 239142

PATIENT
  Age: 71 Year
  Sex: Female
  Weight: 73.4 kg

DRUGS (2)
  1. NOVOMIX 30 FLEXPEN (NOVOMIX FLEXPEN) (INSULIN ASPART) SUSPENSION FOR I [Suspect]
     Indication: DIABETES MELLITUS NON-INSULIN-DEPENDENT
     Dosage: 46 U, QD, SUBCUTANEOUS
     Route: 058
     Dates: start: 20040609, end: 20040818
  2. TOFRANIL [Concomitant]

REACTIONS (3)
  - DIABETIC COMPLICATION [None]
  - FIBROMYALGIA [None]
  - HYPERSENSITIVITY [None]
